FAERS Safety Report 16051047 (Version 2)
Quarter: 2019Q1

REPORT INFORMATION
  Report Type: Spontaneous
  Country: JP (occurrence: JP)
  Receive Date: 20190308
  Receipt Date: 20190327
  Transmission Date: 20190418
  Serious: Yes (Hospitalization, Disabling, Other)
  Sender: FDA-Public Use
  Company Number: JP-REGENERON PHARMACEUTICALS, INC.-2018-48280

PATIENT

DRUGS (20)
  1. EYLEA [Suspect]
     Active Substance: AFLIBERCEPT
     Dosage: DAILY DOSE 0.05 ML, BOTH EYES
     Route: 031
     Dates: start: 20170628, end: 20170628
  2. NATRIX [Concomitant]
     Active Substance: INDAPAMIDE
     Indication: PRODUCT USED FOR UNKNOWN INDICATION
     Dosage: DAILY DOSE 1 MG
  3. GLYCORAN [Concomitant]
     Active Substance: GLYCERIN
     Indication: PRODUCT USED FOR UNKNOWN INDICATION
     Dosage: DAILY DOSE 3 DF
  4. ROSUVASTATIN. [Concomitant]
     Active Substance: ROSUVASTATIN
     Indication: PRODUCT USED FOR UNKNOWN INDICATION
     Dosage: DAILY DOSE 1 DF
  5. TIMOPTOL [Concomitant]
     Active Substance: TIMOLOL
     Dosage: UNK UNK, QD
     Route: 047
  6. EYLEA [Suspect]
     Active Substance: AFLIBERCEPT
     Dosage: DAILY DOSE 0.05 ML, RIGHT EYE
     Route: 031
     Dates: start: 20160908, end: 20160908
  7. INSULIN GLARGINE BS                /01483503/ [Concomitant]
     Indication: PRODUCT USED FOR UNKNOWN INDICATION
  8. EYLEA [Suspect]
     Active Substance: AFLIBERCEPT
     Dosage: DAILY DOSE 0.05 ML, LEFT EYE
     Route: 031
     Dates: start: 20180215, end: 20180215
  9. NATRIX [Concomitant]
     Active Substance: INDAPAMIDE
     Dosage: DAILY DOSE 1 MG
  10. TELMISARTAN. [Concomitant]
     Active Substance: TELMISARTAN
     Dosage: 1 DF, BID
  11. NOVORAPID [Concomitant]
     Active Substance: INSULIN ASPART
     Indication: PRODUCT USED FOR UNKNOWN INDICATION
  12. TIMOPTOL [Concomitant]
     Active Substance: TIMOLOL
     Indication: PRODUCT USED FOR UNKNOWN INDICATION
     Dosage: UNK UNK, QD
     Route: 047
  13. ROSUVASTATIN. [Concomitant]
     Active Substance: ROSUVASTATIN
     Dosage: DAILY DOSE 1 DF
  14. EYLEA [Suspect]
     Active Substance: AFLIBERCEPT
     Indication: DIABETIC RETINAL OEDEMA
     Dosage: DAILY DOSE 0.05 ML, LEFT EYE
     Route: 031
     Dates: start: 20160531, end: 20160531
  15. EYLEA [Suspect]
     Active Substance: AFLIBERCEPT
     Dosage: DAILY DOSE 0.05 ML, LEFT EYE
     Route: 031
     Dates: start: 20161117, end: 20161117
  16. AMLODIPINE [Concomitant]
     Active Substance: AMLODIPINE BESYLATE
     Indication: PRODUCT USED FOR UNKNOWN INDICATION
     Dosage: DAILY DOSE 2 DF
  17. AMLODIPINE [Concomitant]
     Active Substance: AMLODIPINE BESYLATE
     Dosage: DAILY DOSE 2 DF
  18. TELMISARTAN. [Concomitant]
     Active Substance: TELMISARTAN
     Indication: PRODUCT USED FOR UNKNOWN INDICATION
     Dosage: 1 DF, BID
  19. EYLEA [Suspect]
     Active Substance: AFLIBERCEPT
     Dosage: DAILY DOSE 0.05 ML, LEFT EYE
     Route: 031
     Dates: start: 20180906, end: 20180906
  20. GLYCORAN [Concomitant]
     Active Substance: GLYCERIN
     Dosage: DAILY DOSE 3 DF

REACTIONS (4)
  - Gait disturbance [Recovered/Resolved with Sequelae]
  - Thrombotic cerebral infarction [Recovered/Resolved with Sequelae]
  - Cervical spinal stenosis [Unknown]
  - Hemiplegia [Recovered/Resolved with Sequelae]

NARRATIVE: CASE EVENT DATE: 20181005
